FAERS Safety Report 13464545 (Version 1)
Quarter: 2017Q2

REPORT INFORMATION
  Report Type: Spontaneous
  Country: US (occurrence: US)
  Receive Date: 20170420
  Receipt Date: 20170420
  Transmission Date: 20170830
  Serious: Yes (Hospitalization, Other)
  Sender: FDA-Public Use
  Company Number: US-ROCHE-586178

PATIENT
  Age: 22 Year
  Sex: Male
  Weight: 87.5 kg

DRUGS (5)
  1. AMNESTEEM [Suspect]
     Active Substance: ISOTRETINOIN
     Dosage: AMNESTEEM DISPENSED ON: 22DEC05, 24JAN06, 24FEB06 + 03APR06
     Route: 048
     Dates: start: 20051222, end: 200606
  2. ADVIL [Concomitant]
     Active Substance: IBUPROFEN
     Indication: HEADACHE
     Route: 065
  3. ACCUTANE [Suspect]
     Active Substance: ISOTRETINOIN
     Indication: ACNE
     Route: 065
  4. AMNESTEEM [Suspect]
     Active Substance: ISOTRETINOIN
     Indication: ACNE
     Dosage: AMNESTEEM DISPENSED ON: 25NOV05
     Route: 048
     Dates: start: 200511, end: 20051222
  5. TAZORAC [Concomitant]
     Active Substance: TAZAROTENE
     Route: 065

REACTIONS (5)
  - Stomatitis [Unknown]
  - Inflammatory bowel disease [Unknown]
  - Anxiety [Unknown]
  - Depressed mood [Unknown]
  - Colitis [Recovering/Resolving]

NARRATIVE: CASE EVENT DATE: 20060329
